FAERS Safety Report 7718196-2 (Version None)
Quarter: 2011Q3

REPORT INFORMATION
  Report Type: 
  Country: None (occurrence: None)
  Receive Date: 20110830
  Receipt Date: 20110819
  Transmission Date: 20111222
  Serious: Yes (Other)
  Sender: FDA-Public Use
  Company Number: PHHY2011JP75801

PATIENT
  Age: 17 Year
  Sex: Male

DRUGS (3)
  1. TEGRETOL [Suspect]
     Indication: EPILEPSY
     Dosage: 500 MG, (200 MG IN THE MORNING AND 300 MG IN THE EVENING)
     Route: 048
  2. TEGRETOL [Suspect]
     Dosage: 500 MG, (300 MG IN THE MORNING AND 200 MG IN THE EVENING)
     Route: 048
  3. CONCERTA [Concomitant]
     Dosage: UNK UKN, UNK
     Route: 048

REACTIONS (1)
  - GASTROINTESTINAL MOTILITY DISORDER [None]
